FAERS Safety Report 9509113 (Version 1)
Quarter: 2013Q3

REPORT INFORMATION
  Report Type: Spontaneous
  Country: US (occurrence: US)
  Receive Date: 20130909
  Receipt Date: 20130909
  Transmission Date: 20140515
  Serious: No
  Sender: FDA-Public Use
  Company Number: US-BRISTOL-MYERS SQUIBB COMPANY-19030303

PATIENT
  Sex: Male

DRUGS (3)
  1. ABILIFY [Suspect]
     Dosage: 1DF: BETWEEN 5 AND 10 MG
  2. CONCERTA [Suspect]
  3. CLONIDINE [Suspect]

REACTIONS (1)
  - Hepatic enzyme increased [Not Recovered/Not Resolved]
